FAERS Safety Report 22277569 (Version 7)
Quarter: 2023Q4

REPORT INFORMATION
  Report Type: Spontaneous
  Country: CA (occurrence: CA)
  Receive Date: 20230503
  Receipt Date: 20231206
  Transmission Date: 20240110
  Serious: Yes (Other)
  Sender: FDA-Public Use
  Company Number: CA-CELLTRION INC.-2023CA009247

PATIENT

DRUGS (8)
  1. INFLECTRA [Suspect]
     Active Substance: INFLIXIMAB-DYYB
     Indication: Colitis ulcerative
     Dosage: 5 MG/KG, W0, W2, W6 AND THEN EVERY 8 WEEKS
     Route: 042
     Dates: start: 20230316
  2. INFLECTRA [Suspect]
     Active Substance: INFLIXIMAB-DYYB
     Dosage: 5 MG/KG, W0, W2, W6 AND THEN EVERY 8 WEEKS
     Route: 042
     Dates: start: 20230330
  3. INFLECTRA [Suspect]
     Active Substance: INFLIXIMAB-DYYB
     Dosage: 410 MG, W6 DOSE AFTER 8 WEEKS AND 6 DAYS
     Route: 042
     Dates: start: 20230531
  4. INFLECTRA [Suspect]
     Active Substance: INFLIXIMAB-DYYB
     Dosage: 5 MG/KG, W0, W2, W6 AND THEN EVERY 8 WEEKS (395 MG, EVERY 8 WEEKS)
     Route: 042
     Dates: start: 20230726
  5. INFLECTRA [Suspect]
     Active Substance: INFLIXIMAB-DYYB
     Dosage: 10 MG/KG, EVERY 4 WEEKS (790 MG, AFTER 5 WEEKS)
     Route: 042
     Dates: start: 20230831
  6. INFLECTRA [Suspect]
     Active Substance: INFLIXIMAB-DYYB
     Dosage: 10 MG/KG, EVERY 4 WEEKS (780 MG, 4 WEEKS AND 1 DAY)
     Route: 042
     Dates: start: 20230929
  7. INFLECTRA [Suspect]
     Active Substance: INFLIXIMAB-DYYB
     Dosage: 10 MG/KG, EVERY 4 WEEKS (780 MG, AFTER 4 WEEKS)
     Route: 042
     Dates: start: 20231027
  8. INFLECTRA [Suspect]
     Active Substance: INFLIXIMAB-DYYB
     Dosage: 10 MG/KG, EVERY 4 WEEKS (790 MG, AFTER 4 WEEKS)
     Route: 042
     Dates: start: 20231124

REACTIONS (12)
  - Pneumonia bacterial [Recovered/Resolved]
  - Blood pressure systolic increased [Recovering/Resolving]
  - Drug ineffective [Unknown]
  - Condition aggravated [Recovering/Resolving]
  - Heart rate decreased [Not Recovered/Not Resolved]
  - Blood pressure increased [Not Recovered/Not Resolved]
  - Musculoskeletal chest pain [Not Recovered/Not Resolved]
  - Cough [Not Recovered/Not Resolved]
  - Constipation [Not Recovered/Not Resolved]
  - Abnormal faeces [Not Recovered/Not Resolved]
  - Nasal disorder [Unknown]
  - Off label use [Unknown]

NARRATIVE: CASE EVENT DATE: 20230101
